FAERS Safety Report 5319176-7 (Version None)
Quarter: 2007Q1

REPORT INFORMATION
  Report Type: 
  Country: None (occurrence: None)
  Receive Date: 20070207
  Receipt Date: 20060718
  Transmission Date: 20070707
  Serious: Yes (Other)
  Sender: FDA-Public Use
  Company Number: 2006077821

PATIENT
  Age: 41 Year
  Sex: Female
  Weight: 72.5755 kg

DRUGS (2)
  1. CABERGOLINE [Suspect]
     Indication: PROLACTINOMA
     Dosage: 0.75 MG, 2 IN 1 WK
     Dates: start: 19970101, end: 20060601
  2. AZITHROMYCIN [Suspect]
     Indication: DRUG USE FOR UNKNOWN INDICATION

REACTIONS (12)
  - BLOOD PROLACTIN INCREASED [None]
  - CONDITION AGGRAVATED [None]
  - DRUG HYPERSENSITIVITY [None]
  - HEADACHE [None]
  - INSOMNIA [None]
  - MALAISE [None]
  - PALPITATIONS [None]
  - REFLEXES ABNORMAL [None]
  - SWELLING [None]
  - THYROID DISORDER [None]
  - URTICARIA [None]
  - VOMITING [None]
